FAERS Safety Report 6945969-6 (Version None)
Quarter: 2010Q3

REPORT INFORMATION
  Report Type: 
  Country: None (occurrence: None)
  Receive Date: 20100827
  Receipt Date: 20100818
  Transmission Date: 20110219
  Serious: Yes (Hospitalization)
  Sender: FDA-Public Use
  Company Number: FR-JNJFOC-20100807072

PATIENT
  Sex: Male
  Weight: 63 kg

DRUGS (5)
  1. RISPERDAL [Suspect]
     Indication: PRODUCT USED FOR UNKNOWN INDICATION
     Route: 048
  2. FURADANTINE [Suspect]
     Indication: URINARY TRACT INFECTION
     Route: 048
  3. LOXAPAC [Suspect]
     Indication: AGITATION
     Route: 065
  4. ACE INHIBITORS [Concomitant]
     Route: 065
  5. DIURETIC [Concomitant]
     Route: 065

REACTIONS (2)
  - AGRANULOCYTOSIS [None]
  - RENAL FAILURE [None]
